FAERS Safety Report 21004128 (Version 1)
Quarter: 2022Q2

REPORT INFORMATION
  Report Type: Spontaneous
  Country: GB (occurrence: GB)
  Receive Date: 20220624
  Receipt Date: 20220624
  Transmission Date: 20220720
  Serious: Yes (Hospitalization, Other)
  Sender: FDA-Public Use
  Company Number: GB-AMGEN-GBRSP2022102938

PATIENT
  Age: 43 Year
  Sex: Female

DRUGS (37)
  1. TRASTUZUMAB [Suspect]
     Active Substance: TRASTUZUMAB
     Indication: Product used for unknown indication
     Dosage: 600 MILLIGRAM, Q3WK
     Route: 058
     Dates: start: 20210514
  2. XGEVA [Suspect]
     Active Substance: DENOSUMAB
     Indication: Bone disorder
     Dosage: 120 MILLIGRAM
     Route: 042
     Dates: start: 20160226
  3. DOCETAXEL [Suspect]
     Active Substance: DOCETAXEL
     Indication: HER2 positive breast cancer
     Dosage: 148 MILLIGRAM, Q3WK
     Route: 042
     Dates: start: 20160304
  4. PERTUZUMAB [Suspect]
     Active Substance: PERTUZUMAB
     Indication: HER2 positive breast cancer
     Dosage: 840 MILLIGRAM, Q3WK
     Route: 042
     Dates: start: 20160303
  5. PERTUZUMAB [Suspect]
     Active Substance: PERTUZUMAB
     Dosage: 420 MILLIGRAM, Q3WK
     Route: 042
     Dates: start: 20160324
  6. ADO-TRASTUZUMAB EMTANSINE [Suspect]
     Active Substance: ADO-TRASTUZUMAB EMTANSINE
     Indication: HER2 positive breast cancer
     Dosage: UNK
     Route: 042
     Dates: start: 202102, end: 202104
  7. AMITRIPTYLINE [Concomitant]
     Active Substance: AMITRIPTYLINE
     Indication: Acetabulum fracture
     Dosage: 10 MILLIGRAM
     Route: 048
     Dates: start: 20170522
  8. APIXABAN [Concomitant]
     Active Substance: APIXABAN
     Indication: Acetabulum fracture
     Dosage: 2.5 MILLIGRAM, BID
     Route: 048
     Dates: start: 20170512
  9. CODEINE PHOSPHATE [Concomitant]
     Active Substance: CODEINE PHOSPHATE
     Dosage: 90 MILLIGRAM, QD
     Route: 048
     Dates: start: 20160912
  10. DEXAMETHASONE [Concomitant]
     Active Substance: DEXAMETHASONE
     Indication: Premedication
     Dosage: 8 MILLIGRAM, BID
     Route: 048
     Dates: start: 20160302
  11. DICLOFENAC SODIUM [Concomitant]
     Active Substance: DICLOFENAC SODIUM
     Dosage: 1 PERCENT
     Route: 061
     Dates: start: 20161220
  12. DOMPERIDONE [Concomitant]
     Active Substance: DOMPERIDONE
     Dosage: 10 MILLIGRAM
     Route: 048
     Dates: start: 20160302
  13. IBUPROFEN [Concomitant]
     Active Substance: IBUPROFEN
     Dosage: 400 MILLIGRAM, QD
     Route: 048
  14. LANSOPRAZOLE [Concomitant]
     Active Substance: LANSOPRAZOLE
     Indication: Prophylaxis
     Dosage: 30 MICROGRAM
     Route: 048
     Dates: start: 20160324
  15. LIDOCAINE [Concomitant]
     Active Substance: LIDOCAINE
     Dosage: 700 MILLIGRAM, QD
     Route: 062
     Dates: start: 20160307
  16. LOPERAMIDE [Concomitant]
     Active Substance: LOPERAMIDE
     Indication: Prophylaxis
     Dosage: 2 MILLIGRAM
     Route: 048
     Dates: start: 20160302
  17. LOSARTAN POTASSIUM [Concomitant]
     Active Substance: LOSARTAN POTASSIUM
     Dosage: 50 MILLIGRAM, QD
     Route: 048
     Dates: start: 20160506
  18. MENTHOL [Concomitant]
     Active Substance: MENTHOL
     Dosage: 2 PERCENT, QD
     Route: 061
     Dates: start: 20160307
  19. METFORMIN [Concomitant]
     Active Substance: METFORMIN HYDROCHLORIDE
     Dosage: 850 MILLIGRAM
     Route: 048
  20. NAPROXEN [Concomitant]
     Active Substance: NAPROXEN
     Dosage: 500 MILLIGRAM, TID
     Route: 048
  21. OXYCODONE [Concomitant]
     Active Substance: OXYCODONE
     Dosage: 10 MILLIGRAM
     Route: 048
     Dates: start: 20170512
  22. OXYCODONE [Concomitant]
     Active Substance: OXYCODONE
     Dosage: 15 MILLIGRAM
     Route: 048
     Dates: start: 20170512
  23. ACETAMINOPHEN [Concomitant]
     Active Substance: ACETAMINOPHEN
     Dosage: 1 GRAM TID
     Route: 048
     Dates: start: 20160316, end: 20160415
  24. PEGFILGRASTIM [Concomitant]
     Active Substance: PEGFILGRASTIM
     Dosage: 6 MILLIGRAM ONCE 24 HOURS AFTER CHEMOTHERAPY
     Route: 058
     Dates: start: 20160302
  25. PREGABALIN [Concomitant]
     Active Substance: PREGABALIN
     Dosage: 75 MILLIGRAM, BID
     Route: 048
     Dates: start: 20160307, end: 20170516
  26. PREGABALIN [Concomitant]
     Active Substance: PREGABALIN
     Dosage: 150 MILLIGRAM, QD
     Route: 048
     Dates: start: 20160307
  27. PREGABALIN [Concomitant]
     Active Substance: PREGABALIN
     Dosage: 225 MILLIGRAM, BID
     Route: 048
     Dates: start: 20170516
  28. COCODAMOL [Concomitant]
     Active Substance: ACETAMINOPHEN\CODEINE PHOSPHATE
     Dosage: 30 MILLIGRAM
     Route: 048
     Dates: start: 2016
  29. COCODAMOL [Concomitant]
     Active Substance: ACETAMINOPHEN\CODEINE PHOSPHATE
     Dosage: 30 MILLIGRAM
     Route: 048
     Dates: start: 20160912
  30. COCODAMOL [Concomitant]
     Active Substance: ACETAMINOPHEN\CODEINE PHOSPHATE
     Dosage: 30 MILLIGRAM
     Route: 048
     Dates: start: 201603
  31. ANUSOL HC [Concomitant]
     Active Substance: HYDROCORTISONE
     Dosage: UNK UNK, QD
     Route: 061
     Dates: start: 20160324
  32. MORPHINE SULFATE [Concomitant]
     Active Substance: MORPHINE SULFATE
     Dosage: 10 MILLIGRAM
     Route: 048
  33. MORPHINE SULFATE [Concomitant]
     Active Substance: MORPHINE SULFATE
     Dosage: 10 MILLIGRAM
     Route: 048
  34. CALCIUM\CHOLECALCIFEROL [Concomitant]
     Active Substance: CALCIUM\CHOLECALCIFEROL
     Dosage: 1 DOSAGE FORMM, QD
     Route: 048
     Dates: start: 20160225
  35. MORPHINE SULFATE [Concomitant]
     Active Substance: MORPHINE SULFATE
     Dosage: 10 MILLIGRAM
     Route: 048
     Dates: start: 20160311
  36. NEOMYCIN SULFATE [Concomitant]
     Active Substance: NEOMYCIN SULFATE
     Dosage: UNK UNK, BID
     Route: 061
     Dates: start: 20160324
  37. CHLORHEXIDINE HYDROCHLORIDE [Concomitant]
     Active Substance: CHLORHEXIDINE HYDROCHLORIDE
     Dosage: UNK
     Route: 061
     Dates: start: 20160324

REACTIONS (13)
  - Autonomic neuropathy [Recovered/Resolved]
  - Vaginal haemorrhage [Not Recovered/Not Resolved]
  - Hypokalaemia [Recovered/Resolved]
  - Neuropathy peripheral [Not Recovered/Not Resolved]
  - Sciatica [Recovered/Resolved]
  - Nail bed tenderness [Recovered/Resolved]
  - Skin discolouration [Not Recovered/Not Resolved]
  - Localised infection [Recovered/Resolved]
  - Off label use [Unknown]
  - Dysuria [Recovered/Resolved]
  - Anaemia [Recovered/Resolved]
  - Fatigue [Recovered/Resolved]
  - Diarrhoea [Recovered/Resolved]

NARRATIVE: CASE EVENT DATE: 20160315
